FAERS Safety Report 8397812 (Version 8)
Quarter: 2013Q4

REPORT INFORMATION
  Report Type: Report from Study
  Country: JP (occurrence: JP)
  Receive Date: 20120209
  Receipt Date: 20131227
  Transmission Date: 20140711
  Serious: Yes (Hospitalization)
  Sender: FDA-Public Use
  Company Number: JP-VERTEX PHARMACEUTICALS INC.-AE-2012-001917

PATIENT
  Age: 60 Year
  Sex: Female

DRUGS (13)
  1. VX-950 (TELAPREVIR) [Suspect]
     Indication: CHRONIC HEPATITIS C
     Dosage: 2250 MG, QD
     Route: 048
     Dates: start: 20120119, end: 20120123
  2. PEGINTRON [Suspect]
     Indication: CHRONIC HEPATITIS C
     Dosage: 1.5 ?G/KG, QW
     Route: 058
     Dates: start: 20120119, end: 20120123
  3. PEGINTRON [Suspect]
     Dosage: 1.5 ?G/KG, QW
     Route: 058
     Dates: start: 20120202, end: 20120202
  4. PEGINTRON [Suspect]
     Dosage: 0.75 ?G/KG, QW
     Route: 058
     Dates: start: 20120209, end: 20120216
  5. PEGINTRON [Suspect]
     Dosage: 1.5 ?G/KG, QW
     Route: 058
     Dates: start: 20120223, end: 20120419
  6. REBETOL [Suspect]
     Indication: CHRONIC HEPATITIS C
     Dosage: 600 MG, QD
     Route: 048
     Dates: start: 20120119, end: 20120123
  7. REBETOL [Suspect]
     Dosage: 600 MG, QD
     Route: 048
     Dates: start: 20120201, end: 20120321
  8. REBETOL [Suspect]
     Dosage: 400 MG, QD
     Route: 048
     Dates: start: 20120322, end: 20120418
  9. REBETOL [Suspect]
     Dosage: 200 MG, QD
     Route: 048
     Dates: start: 20120419, end: 20120425
  10. NORVASC [Concomitant]
     Dosage: 2.5 MG, QD
     Route: 048
  11. OMEPRAL [Concomitant]
     Dosage: 20 MG, QD
     Route: 048
  12. MUCOSTA [Concomitant]
     Dosage: 300 MG, QD
     Route: 048
     Dates: start: 20120308, end: 20120426
  13. URSO [Concomitant]
     Dosage: 600 MG, QD
     Route: 048
     Dates: start: 20120426

REACTIONS (1)
  - Blood creatinine increased [Recovered/Resolved]
